FAERS Safety Report 17265472 (Version 1)
Quarter: 2020Q1

REPORT INFORMATION
  Report Type: Report from Study
  Country: ES (occurrence: ES)
  Receive Date: 20200114
  Receipt Date: 20200114
  Transmission Date: 20200409
  Serious: Yes (Life-Threatening)
  Sender: FDA-Public Use
  Company Number: ES-TEVA-2020-ES-1167004

PATIENT
  Age: 74 Year
  Sex: Male

DRUGS (4)
  1. LOSARTAN AND HYDROCHLOROTHIAZIDE [Suspect]
     Active Substance: HYDROCHLOROTHIAZIDE\LOSARTAN POTASSIUM
     Dosage: 1 COMP/DAY
     Route: 048
     Dates: start: 20151026
  2. AMLODIPINO ALTER 5 MG COMPRIMIDOS EFG [Suspect]
     Active Substance: AMLODIPINE BESYLATE
     Route: 048
     Dates: start: 20160113
  3. EUCREAS 50 MG/850 MG COMPRIMIDOS RECUBIERTOS CON PELICULA [Suspect]
     Active Substance: METFORMIN HYDROCHLORIDE\VILDAGLIPTIN
     Dosage: 2 DOSAGE FORMS DAILY; 1-0-1
     Dates: start: 20151210
  4. OMEPRAZOL CINFAMED 20 MG CAPSULAS DURAS GASTRORESISTENTES EFG [Suspect]
     Active Substance: OMEPRAZOLE
     Route: 048
     Dates: start: 20160701

REACTIONS (1)
  - Pancreatitis [Recovering/Resolving]

NARRATIVE: CASE EVENT DATE: 20191118
